FAERS Safety Report 5856433-X (Version None)
Quarter: 2008Q3

REPORT INFORMATION
  Report Type: 
  Country: None (occurrence: None)
  Receive Date: 20080825
  Receipt Date: 20080528
  Transmission Date: 20090109
  Serious: No
  Sender: FDA-Public Use
  Company Number: A0723750A

PATIENT
  Age: 37 Year
  Sex: Female

DRUGS (4)
  1. VERAMYST [Suspect]
     Indication: DRUG USE FOR UNKNOWN INDICATION
     Route: 065
  2. PULMICORT-100 [Concomitant]
     Dosage: 1PUFF TWICE PER DAY
     Route: 048
     Dates: start: 20071219
  3. ALBUTEROL [Concomitant]
     Dosage: 1PUFF TWICE PER DAY
     Route: 048
     Dates: start: 20071219
  4. FLUCONAZOLE [Concomitant]
     Dosage: 150MG UNKNOWN
     Route: 048
     Dates: start: 20050401

REACTIONS (1)
  - VISUAL IMPAIRMENT [None]
